FAERS Safety Report 6344006-4 (Version None)
Quarter: 2009Q3

REPORT INFORMATION
  Report Type: 
  Country: None (occurrence: None)
  Receive Date: 20090908
  Receipt Date: 20090828
  Transmission Date: 20100115
  Serious: Yes (Hospitalization)
  Sender: FDA-Public Use
  Company Number: IE-PFIZER INC-2009262223

PATIENT

DRUGS (1)
  1. ISTIN [Suspect]
     Indication: HYPERTENSION
     Route: 048

REACTIONS (1)
  - MENTAL IMPAIRMENT [None]
